FAERS Safety Report 8987970 (Version 2)
Quarter: 2013Q1

REPORT INFORMATION
  Report Type: Spontaneous
  Country: US (occurrence: US)
  Receive Date: 20121227
  Receipt Date: 20130123
  Transmission Date: 20140127
  Serious: No
  Sender: FDA-Public Use
  Company Number: US-BAYER-2012-130349

PATIENT
  Age: 88 Year
  Sex: Female
  Weight: 53.52 kg

DRUGS (9)
  1. STIVARGA [Suspect]
     Indication: COLON CANCER
     Dosage: 160 MG, QD
     Route: 048
     Dates: start: 20121206
  2. FOLFIRI [Concomitant]
     Indication: COLON CANCER
     Dosage: UNK
     Dates: start: 20121016, end: 20121112
  3. LISINOPRIL [Concomitant]
     Indication: BLOOD PRESSURE INCREASED
     Dosage: 20 MG, BID
     Route: 048
  4. MULTIVITAMINS [Concomitant]
     Dosage: 1 DF, QD
     Route: 048
  5. IMODIUM [Concomitant]
     Dosage: UNK UNK, PRN
     Route: 048
  6. IMODIUM [Concomitant]
     Dosage: UNK UNK, PRN
     Route: 048
  7. LORAZEPAM [Concomitant]
     Dosage: 0.5 MG, HS
     Route: 048
  8. OXYGEN [Concomitant]
     Dosage: UNK UNK, PRN
     Route: 055
  9. PHENERGAN [Concomitant]
     Dosage: 25 MG, PRN
     Route: 048

REACTIONS (7)
  - Musculoskeletal pain [Recovered/Resolved]
  - Arthralgia [Recovered/Resolved]
  - Dysphonia [Recovered/Resolved]
  - Back pain [Recovered/Resolved]
  - Blood pressure systolic increased [Recovered/Resolved]
  - Hospice care [None]
  - Asthenia [None]
